APPROVED DRUG PRODUCT: PROCAINAMIDE HYDROCHLORIDE
Active Ingredient: PROCAINAMIDE HYDROCHLORIDE
Strength: 500MG/ML
Dosage Form/Route: INJECTABLE;INJECTION
Application: A088637 | Product #001
Applicant: INTERNATIONAL MEDICATION SYSTEM
Approved: Jul 31, 1984 | RLD: No | RS: No | Type: DISCN